FAERS Safety Report 7269645-8 (Version None)
Quarter: 2011Q1

REPORT INFORMATION
  Report Type: 
  Country: None (occurrence: None)
  Receive Date: 20110202
  Receipt Date: 20110124
  Transmission Date: 20110831
  Serious: Yes (Other)
  Sender: FDA-Public Use
  Company Number: DE-CEPHALON-2011000380

PATIENT
  Sex: Male

DRUGS (1)
  1. MODAFINIL [Suspect]
     Indication: FATIGUE
     Route: 048
     Dates: start: 20110111

REACTIONS (3)
  - URTICARIA [None]
  - RASH [None]
  - DRUG INEFFECTIVE FOR UNAPPROVED INDICATION [None]
